FAERS Safety Report 8789893 (Version 1)
Quarter: 2012Q4

REPORT INFORMATION
  Report Type: 
  Country: US (occurrence: US)
  Receive Date: 20120917
  Receipt Date: 20120917
  Transmission Date: 20130627
  Serious: Yes (Other)
  Sender: FDA-Public Use
  Company Number: US-PFIZER INC-2012225949

PATIENT
  Age: 21 Year
  Sex: Female
  Weight: 108.84 kg

DRUGS (6)
  1. ZOLOFT [Suspect]
     Indication: DEPRESSION
     Dosage: 50 mg, UNK
     Route: 048
     Dates: start: 20110920
  2. ZOLOFT [Suspect]
     Indication: BORDERLINE PERSONALITY DISORDER
     Dosage: UNK
     Route: 048
  3. ZOLOFT [Suspect]
     Dosage: 50 mg, UNK
     Route: 048
  4. ZOLOFT [Suspect]
     Dosage: 100 mg, UNK
     Route: 048
  5. VALIUM [Concomitant]
     Indication: ANXIETY
     Dosage: 5 mg, as needed
     Route: 048
  6. METFORMIN [Concomitant]
     Dosage: 500 mg, 2x/day
     Route: 048

REACTIONS (5)
  - Restlessness [Unknown]
  - Personality disorder [Unknown]
  - Fibromyalgia [Not Recovered/Not Resolved]
  - General physical health deterioration [Unknown]
  - Pain [Unknown]
